FAERS Safety Report 6231950-1 (Version None)
Quarter: 2009Q2

REPORT INFORMATION
  Report Type: 
  Country: None (occurrence: None)
  Receive Date: 20090612
  Receipt Date: 20090528
  Transmission Date: 20091009
  Serious: Yes (Life-Threatening)
  Sender: FDA-Public Use
  Company Number: 8046054

PATIENT
  Age: 10 Year
  Sex: Male

DRUGS (5)
  1. KEPPRA [Suspect]
     Indication: EPILEPSY
     Dosage: 600 MG /D IV
     Route: 042
     Dates: start: 20090429, end: 20090505
  2. FIDATO [Suspect]
     Indication: BACTERIAL INFECTION
     Dosage: 2 G /D IV
     Route: 042
     Dates: start: 20090429, end: 20090503
  3. VANCOMICINA /00314401/ [Suspect]
     Indication: BACTERIAL INFECTION
     Dosage: 1200 MG /D
     Dates: start: 20090430, end: 20090503
  4. ACETAMINOPHEN [Concomitant]
  5. ANTRA [Concomitant]

REACTIONS (1)
  - RHABDOMYOLYSIS [None]
